FAERS Safety Report 5041546-5 (Version None)
Quarter: 2006Q2

REPORT INFORMATION
  Report Type: 
  Country: None (occurrence: None)
  Receive Date: 20060627
  Receipt Date: 20060608
  Transmission Date: 20061013
  Serious: Yes (Other)
  Sender: FDA-Public Use
  Company Number: US200606002015

PATIENT
  Age: 69 Year
  Sex: Female

DRUGS (4)
  1. HUMULIN N [Suspect]
     Indication: DIABETES MELLITUS
  2. ACTOS [Concomitant]
  3. GLUCOVANCE [Concomitant]
  4. PROCRIT [Concomitant]

REACTIONS (5)
  - AORTIC ANEURYSM [None]
  - BLOOD GLUCOSE INCREASED [None]
  - PHARMACEUTICAL PRODUCT COMPLAINT [None]
  - WEIGHT DECREASED [None]
  - WEIGHT INCREASED [None]
